FAERS Safety Report 21590670 (Version 2)
Quarter: 2022Q4

REPORT INFORMATION
  Report Type: Spontaneous
  Country: GB (occurrence: GB)
  Receive Date: 20221114
  Receipt Date: 20221121
  Transmission Date: 20230113
  Serious: No
  Sender: FDA-Public Use
  Company Number: GB-GSK-GB2022EME166693

PATIENT

DRUGS (2)
  1. SOTROVIMAB [Suspect]
     Active Substance: SOTROVIMAB
     Indication: Product used for unknown indication
     Dosage: 500 MG
     Route: 042
     Dates: start: 20220803, end: 20220803
  2. SOTROVIMAB [Suspect]
     Active Substance: SOTROVIMAB
     Dosage: 500 MG
     Route: 042
     Dates: start: 20220908, end: 20220908

REACTIONS (6)
  - COVID-19 [Unknown]
  - Diarrhoea [Unknown]
  - Headache [Unknown]
  - SARS-CoV-2 test false positive [Unknown]
  - Drug ineffective [Unknown]
  - Product use issue [Unknown]
